FAERS Safety Report 17561052 (Version 2)
Quarter: 2020Q2

REPORT INFORMATION
  Report Type: Report from Study
  Country: US (occurrence: US)
  Receive Date: 20200319
  Receipt Date: 20200624
  Transmission Date: 20200713
  Serious: Yes (Hospitalization, Other)
  Sender: FDA-Public Use
  Company Number: US-JNJFOC-20200316057

PATIENT
  Age: 52 Year
  Sex: Male
  Weight: 86.1 kg

DRUGS (2)
  1. GUSELKUMAB [Suspect]
     Active Substance: GUSELKUMAB
     Indication: CLINICAL TRIAL PARTICIPANT
     Dosage: 200 MG 1X2 ML
     Route: 058
     Dates: start: 20191216, end: 20191216
  2. GUSELKUMAB [Suspect]
     Active Substance: GUSELKUMAB

REACTIONS (1)
  - Appendicitis [Recovered/Resolved]

NARRATIVE: CASE EVENT DATE: 20200306
